FAERS Safety Report 8791847 (Version 2)
Quarter: 2012Q4

REPORT INFORMATION
  Report Type: 
  Country: US (occurrence: US)
  Receive Date: 20120918
  Receipt Date: 20121206
  Transmission Date: 20130627
  Serious: No
  Sender: FDA-Public Use
  Company Number: US-009507513-1209USA003951

PATIENT
  Age: 39 Year
  Sex: Female

DRUGS (4)
  1. ISENTRESS [Suspect]
     Dosage: UNK
     Route: 048
  2. FUZEON [Suspect]
     Dosage: UNK
     Route: 048
  3. RETROVIR [Suspect]
     Route: 048
  4. COMBIVIR [Suspect]
     Dosage: UNK
     Route: 048

REACTIONS (1)
  - Maternal exposure timing unspecified [Unknown]
